FAERS Safety Report 7972031-6 (Version None)
Quarter: 2011Q4

REPORT INFORMATION
  Report Type: 
  Country: None (occurrence: None)
  Receive Date: 20111212
  Receipt Date: 20111206
  Transmission Date: 20120403
  Serious: Yes (Hospitalization)
  Sender: FDA-Public Use
  Company Number: FR-PFIZER INC-2011298090

PATIENT
  Age: 61 Year
  Sex: Female
  Weight: 62 kg

DRUGS (4)
  1. CYTARABINE [Suspect]
     Dosage: 340 MG/24H, UNK
     Route: 042
     Dates: start: 20080128, end: 20080203
  2. CERUBIDINE [Suspect]
     Dosage: 105MG/24H, UNK
     Route: 042
     Dates: start: 20080128, end: 20080130
  3. CORDARONE [Suspect]
     Dosage: 200MG/24H, UNK
     Route: 048
     Dates: start: 20080119, end: 20080414
  4. GEMTUZUMAB OZOGAMICIN [Suspect]
     Dosage: 5 MG/24H, UNK
     Route: 042
     Dates: start: 20080128, end: 20080203

REACTIONS (1)
  - AUTOIMMUNE THROMBOCYTOPENIA [None]
